FAERS Safety Report 15433133 (Version 1)
Quarter: 2018Q3

REPORT INFORMATION
  Report Type: Spontaneous
  Country: US (occurrence: US)
  Receive Date: 20180927
  Receipt Date: 20180927
  Transmission Date: 20181010
  Serious: No
  Sender: FDA-Public Use
  Company Number: US-NOVEN PHARMACEUTICALS, INC.-US2017001391

PATIENT

DRUGS (2)
  1. COMBIPATCH [Suspect]
     Active Substance: ESTRADIOL\NORETHINDRONE ACETATE
     Indication: INSOMNIA
     Dosage: UNK, UNKNOWN
     Route: 062
  2. DEXILANT [Concomitant]
     Active Substance: DEXLANSOPRAZOLE
     Indication: DUODENOGASTRIC REFLUX
     Dosage: UNK

REACTIONS (6)
  - Hypersensitivity [Not Recovered/Not Resolved]
  - Product adhesion issue [Unknown]
  - Insomnia [Not Recovered/Not Resolved]
  - Application site irritation [Not Recovered/Not Resolved]
  - Application site erythema [Unknown]
  - Off label use [Unknown]

NARRATIVE: CASE EVENT DATE: 2017
